FAERS Safety Report 22085934 (Version 8)
Quarter: 2023Q4

REPORT INFORMATION
  Report Type: Spontaneous
  Country: US (occurrence: US)
  Receive Date: 20230310
  Receipt Date: 20231218
  Transmission Date: 20240110
  Serious: No
  Sender: FDA-Public Use
  Company Number: US-PFIZER INC-202300100178

PATIENT
  Age: 74 Year
  Sex: Female

DRUGS (2)
  1. PREMARIN [Suspect]
     Active Substance: ESTROGENS, CONJUGATED
     Dosage: 0.625 MG
  2. PREMARIN [Suspect]
     Active Substance: ESTROGENS, CONJUGATED
     Dosage: 0.625 MG
     Dates: start: 2022

REACTIONS (11)
  - Therapeutic product effect incomplete [Unknown]
  - Product storage error [Unknown]
  - Product administration error [Unknown]
  - Feeling abnormal [Unknown]
  - Feeling hot [Unknown]
  - Circadian rhythm sleep disorder [Unknown]
  - Blood glucose abnormal [Unknown]
  - Weight decreased [Unknown]
  - Malaise [Unknown]
  - Oestradiol decreased [Unknown]
  - Blood oestrogen abnormal [Unknown]
